FAERS Safety Report 17207664 (Version 2)
Quarter: 2021Q1

REPORT INFORMATION
  Report Type: Spontaneous
  Country: CA (occurrence: CA)
  Receive Date: 20191227
  Receipt Date: 20210220
  Transmission Date: 20210419
  Serious: Yes (Other)
  Sender: FDA-Public Use
  Company Number: CA-AUROBINDO-AUR-APL-2019-088692

PATIENT
  Age: 63 Year
  Sex: Female

DRUGS (12)
  1. TRAMADOL HYDROCHLORIDE TABLET [Interacting]
     Active Substance: TRAMADOL HYDROCHLORIDE
     Dosage: 100 MILLIGRAM
     Route: 065
  2. APO?LITHIUM CARBONATE [Interacting]
     Active Substance: LITHIUM CARBONATE
     Indication: BIPOLAR II DISORDER
  3. QUETIAPINE FILM?COATED TABLET [Suspect]
     Active Substance: QUETIAPINE
     Indication: FIBROMYALGIA
  4. QUETIAPINE FILM?COATED TABLET [Interacting]
     Active Substance: QUETIAPINE
     Indication: FIBROMYALGIA
  5. QUETIAPINE FILM?COATED TABLET [Suspect]
     Active Substance: QUETIAPINE
     Indication: BIPOLAR II DISORDER
     Dosage: 300 MILLIGRAM
     Route: 065
  6. TRAMADOL HYDROCHLORIDE TABLET [Interacting]
     Active Substance: TRAMADOL HYDROCHLORIDE
     Indication: FIBROMYALGIA
     Dosage: 100 MILLIGRAM, ONCE A DAY
     Route: 065
  7. QUETIAPINE FILM?COATED TABLET [Interacting]
     Active Substance: QUETIAPINE
     Indication: BIPOLAR DISORDER
  8. APO?LITHIUM CARBONATE [Interacting]
     Active Substance: LITHIUM CARBONATE
     Indication: BIPOLAR DISORDER
  9. QUETIAPINE FILM?COATED TABLET [Suspect]
     Active Substance: QUETIAPINE
     Indication: BIPOLAR II DISORDER
     Dosage: 300 MILLIGRAM
     Route: 048
  10. QUETIAPINE FILM?COATED TABLET [Interacting]
     Active Substance: QUETIAPINE
     Indication: AFFECTIVE DISORDER
  11. APO?LITHIUM CARBONATE [Interacting]
     Active Substance: LITHIUM CARBONATE
     Indication: AFFECTIVE DISORDER
     Dosage: 600 MILLIGRAM
     Route: 065
  12. LITHIUM. [Interacting]
     Active Substance: LITHIUM
     Indication: BIPOLAR II DISORDER
     Dosage: 600 MILLIGRAM
     Route: 065

REACTIONS (4)
  - Drug interaction [Recovered/Resolved]
  - Hypomania [Recovered/Resolved]
  - Drug ineffective [Recovered/Resolved]
  - Serotonin syndrome [Recovered/Resolved]
